FAERS Safety Report 5578411-0 (Version None)
Quarter: 2007Q4

REPORT INFORMATION
  Report Type: 
  Country: None (occurrence: None)
  Receive Date: 20071231
  Receipt Date: 20071217
  Transmission Date: 20080405
  Serious: Yes (Other)
  Sender: FDA-Public Use
  Company Number: US-PFIZER INC-2007108387

PATIENT

DRUGS (2)
  1. CHANTIX [Suspect]
  2. ANTIPSYCHOTICS [Concomitant]

REACTIONS (3)
  - HALLUCINATION [None]
  - PARANOIA [None]
  - SUICIDAL IDEATION [None]
